FAERS Safety Report 5725927-X (Version None)
Quarter: 2008Q2

REPORT INFORMATION
  Report Type: 
  Country: None (occurrence: None)
  Receive Date: 20080429
  Receipt Date: 20080414
  Transmission Date: 20081010
  Serious: Yes (Death, Hospitalization, Other)
  Sender: FDA-Public Use
  Company Number: 47342

PATIENT
  Age: 65 Year
  Sex: Male

DRUGS (1)
  1. AMIODARONE HCL [Suspect]
     Indication: ATRIAL FIBRILLATION
     Dosage: 200MG/DAY

REACTIONS (16)
  - AKATHISIA [None]
  - CREPITATIONS [None]
  - CYANOSIS [None]
  - DYSPNOEA [None]
  - DYSPNOEA EXERTIONAL [None]
  - ELECTROCARDIOGRAM ST SEGMENT DEPRESSION [None]
  - HYPERTHYROIDISM [None]
  - IRRITABILITY [None]
  - MULTI-ORGAN FAILURE [None]
  - PLEURAL EFFUSION [None]
  - PRODUCTIVE COUGH [None]
  - PULMONARY FIBROSIS [None]
  - PYREXIA [None]
  - SINUS TACHYCARDIA [None]
  - SPUTUM ABNORMAL [None]
  - TRACHEOSTOMY [None]
